FAERS Safety Report 9835593 (Version 1)
Quarter: 2014Q1

REPORT INFORMATION
  Report Type: Spontaneous
  Country: CH (occurrence: CH)
  Receive Date: 20140122
  Receipt Date: 20140122
  Transmission Date: 20141002
  Serious: Yes (Other)
  Sender: FDA-Public Use
  Company Number: CH-PFIZER INC-2014013658

PATIENT
  Age: 39 Year
  Sex: Female
  Weight: 61 kg

DRUGS (3)
  1. CLINDAMYCIN [Suspect]
     Indication: ACUTE SINUSITIS
     Dosage: UNK
     Route: 048
     Dates: start: 20131211, end: 20131221
  2. PHARMALGEN WASP VENOM [Suspect]
     Indication: IMMUNE TOLERANCE INDUCTION
     Dosage: 100 UG, EVERY 4 WEEKS
     Route: 058
     Dates: start: 20130828
  3. EUTHYROX [Suspect]
     Dosage: 150 UG, 1X/DAY
     Route: 048

REACTIONS (2)
  - Urticaria [Not Recovered/Not Resolved]
  - Swollen tongue [Not Recovered/Not Resolved]
